FAERS Safety Report 16971217 (Version 1)
Quarter: 2019Q4

REPORT INFORMATION
  Report Type: Spontaneous
  Country: US (occurrence: US)
  Receive Date: 20191029
  Receipt Date: 20191029
  Transmission Date: 20200122
  Serious: Yes (Other)
  Sender: FDA-Public Use
  Company Number: US-JNJFOC-20191028883

PATIENT
  Age: 82 Year
  Sex: Male

DRUGS (2)
  1. XARELTO [Suspect]
     Active Substance: RIVAROXABAN
     Indication: PRODUCT USED FOR UNKNOWN INDICATION
     Route: 048
     Dates: start: 2018
  2. XARELTO [Suspect]
     Active Substance: RIVAROXABAN
     Dosage: FOR 14 DAYS IN MARCH
     Route: 048

REACTIONS (1)
  - Eye infection fungal [Not Recovered/Not Resolved]

NARRATIVE: CASE EVENT DATE: 201910
